FAERS Safety Report 12662446 (Version 1)
Quarter: 2016Q3

REPORT INFORMATION
  Report Type: Spontaneous
  Country: CN (occurrence: CN)
  Receive Date: 20160817
  Receipt Date: 20160817
  Transmission Date: 20161109
  Serious: Yes (Other)
  Sender: FDA-Public Use
  Company Number: CN-ELI_LILLY_AND_COMPANY-CN201608006829

PATIENT
  Age: 55 Year
  Sex: Male
  Weight: 78 kg

DRUGS (4)
  1. HUMALOG [Suspect]
     Active Substance: INSULIN LISPRO
     Dosage: 4 U, NOON
     Route: 058
     Dates: start: 2011
  2. HUMALOG [Suspect]
     Active Substance: INSULIN LISPRO
     Dosage: 8 U, AT NIGHT
     Route: 058
     Dates: start: 2011
  3. HUMALOG [Suspect]
     Active Substance: INSULIN LISPRO
     Indication: DIABETES MELLITUS
     Dosage: 12 U, EACH MORNING
     Route: 058
     Dates: start: 2011
  4. LANTUS [Concomitant]
     Active Substance: INSULIN GLARGINE
     Dosage: 24 U, BEFORE SLEEP

REACTIONS (3)
  - Visual acuity reduced [Unknown]
  - Throat cancer [Unknown]
  - Retinal disorder [Unknown]

NARRATIVE: CASE EVENT DATE: 2013
